FAERS Safety Report 12601410 (Version 1)
Quarter: 2016Q3

REPORT INFORMATION
  Report Type: Spontaneous
  Country: US (occurrence: None)
  Receive Date: 20160727
  Receipt Date: 20160727
  Transmission Date: 20161109
  Serious: Yes (Hospitalization)
  Sender: FDA-Public Use
  Company Number: None

PATIENT
  Age: 71 Year
  Sex: Male
  Weight: 97.1 kg

DRUGS (1)
  1. DOCUSATE SODIUM LIQUID [Suspect]
     Active Substance: DOCUSATE SODIUM
     Indication: CONSTIPATION
     Dates: start: 20160611, end: 20160619

REACTIONS (3)
  - Hypercapnia [None]
  - Respiratory failure [None]
  - Burkholderia cepacia complex infection [None]

NARRATIVE: CASE EVENT DATE: 20160619
